FAERS Safety Report 4576329-3 (Version None)
Quarter: 2005Q1

REPORT INFORMATION
  Report Type: 
  Country: None (occurrence: None)
  Receive Date: 20050207
  Receipt Date: 20050124
  Transmission Date: 20050727
  Serious: Yes (Hospitalization)
  Sender: FDA-Public Use
  Company Number: 2004210559FR

PATIENT
  Age: 7 Year
  Sex: Male

DRUGS (16)
  1. SOLU-MEDROL [Suspect]
     Indication: ILL-DEFINED DISORDER
     Dosage: 30 MG (30 MG, 1 IN 1 D), INTRAVENOUS
     Route: 042
     Dates: start: 20040223
  2. CEFOTAXIME SODIUM [Suspect]
     Indication: ILL-DEFINED DISORDER
     Dosage: 3 GRAM (1 GRAM, 3 IN 1 D), INTRAVENOUS
     Route: 042
     Dates: start: 20040302, end: 20040318
  3. FLUNITRAZEPAM    (FLUNITRAZEPAM) [Suspect]
     Indication: ILL-DEFINED DISORDER
     Dosage: SEE IMAGE
     Route: 042
     Dates: start: 20040223, end: 20040226
  4. FLUNITRAZEPAM    (FLUNITRAZEPAM) [Suspect]
     Indication: ILL-DEFINED DISORDER
     Dosage: SEE IMAGE
     Route: 042
     Dates: start: 20040302, end: 20040314
  5. THIOPENTAL SODIUM [Suspect]
     Indication: ILL-DEFINED DISORDER
     Dosage: 56 MG  (56 MG, 1 IN 1 D), INTRAVENOUS
     Route: 042
     Dates: start: 20040223, end: 20040312
  6. OMEPRAZOLE [Suspect]
     Indication: ILL-DEFINED DISORDER
     Dosage: 20 MG (20 MG, 1 IN 1 D), ORAL
     Route: 048
     Dates: start: 20040223, end: 20040318
  7. FENTANYL [Suspect]
     Indication: ILL-DEFINED DISORDER
     Dosage: 70 MG (70 MG, 1 IN 1 D), INTRAVENOUS
     Route: 042
     Dates: start: 20040223, end: 20040322
  8. ACETAMINOPHEN [Suspect]
     Indication: ILL-DEFINED DISORDER
     Dosage: SEE IMAGE
     Route: 042
     Dates: start: 20040223, end: 20040226
  9. ACETAMINOPHEN [Suspect]
     Indication: ILL-DEFINED DISORDER
     Dosage: SEE IMAGE
     Route: 042
     Dates: start: 20040304
  10. ACEBUTOLOL HCL [Concomitant]
  11. ACETYLSALICYLIC ACID SRT [Concomitant]
  12. CYCLOPHOSPHAMIDE [Concomitant]
  13. FUROSEMIDE        (FUROSEMIDE) [Concomitant]
  14. CLOXACILLIN SODIUM [Concomitant]
  15. LABETALOL HYDROCHLORIDE [Concomitant]
  16. IMMUNE GLOBULIN INTRAVENOUS (HUMAN) [Concomitant]

REACTIONS (17)
  - BONE MARROW DEPRESSION [None]
  - COMA [None]
  - DECEREBRATION [None]
  - HAEMORRHAGE [None]
  - HEPATOSPLENOMEGALY [None]
  - HISTIOCYTOSIS HAEMATOPHAGIC [None]
  - HYPERTENSION [None]
  - HYPERTRIGLYCERIDAEMIA [None]
  - HYPOCOAGULABLE STATE [None]
  - INFLAMMATION [None]
  - INTRAVENTRICULAR HAEMORRHAGE [None]
  - LEUKOCYTOSIS [None]
  - OESOPHAGEAL CANDIDIASIS [None]
  - ORAL CANDIDIASIS [None]
  - PANCYTOPENIA [None]
  - PULMONARY CONGESTION [None]
  - SPUTUM DISCOLOURED [None]
